FAERS Safety Report 6851682-6 (Version None)
Quarter: 2010Q3

REPORT INFORMATION
  Report Type: 
  Country: None (occurrence: None)
  Receive Date: 20100717
  Receipt Date: 20080303
  Transmission Date: 20110219
  Serious: No
  Sender: FDA-Public Use
  Company Number: US-PFIZER INC-2008007865

PATIENT
  Sex: Female
  Weight: 77.7 kg

DRUGS (7)
  1. CHANTIX [Suspect]
     Indication: SMOKING CESSATION THERAPY
     Route: 048
     Dates: start: 20071101, end: 20080128
  2. LAMICTAL [Suspect]
  3. ANASTROZOLE [Concomitant]
  4. TETRACYCLINE [Concomitant]
  5. VITAMINS [Concomitant]
  6. CALCIUM [Concomitant]
  7. FOSAMAX [Concomitant]

REACTIONS (1)
  - RASH [None]
